FAERS Safety Report 16017433 (Version 1)
Quarter: 2019Q1

REPORT INFORMATION
  Report Type: Spontaneous
  Country: US (occurrence: US)
  Receive Date: 20190201
  Receipt Date: 20190201
  Transmission Date: 20190418
  Serious: Yes (Disabling)
  Sender: FDA-Public Use
  Company Number: None

PATIENT
  Age: 72 Year
  Sex: Female
  Weight: 67.5 kg

DRUGS (30)
  1. CLARITIN [Concomitant]
     Active Substance: LORATADINE
  2. MELATONIN [Concomitant]
     Active Substance: MELATONIN
  3. GENTEAL MILD [Concomitant]
     Active Substance: HYPROMELLOSE 2910 (4000 MPA.S)
  4. LACTULOSE. [Concomitant]
     Active Substance: LACTULOSE
  5. ALPHA LIPOIC ACID [Concomitant]
     Active Substance: .ALPHA.-LIPOIC ACID
  6. SIMETHICONE (DIMETHICONE) [Concomitant]
     Active Substance: DIMETHICONE
  7. ALAWAY [Concomitant]
     Active Substance: KETOTIFEN FUMARATE
  8. CLONIDINE. [Concomitant]
     Active Substance: CLONIDINE
  9. OMEGA OILS [Concomitant]
  10. STOOL SOFTENER (DOCUSATE) [Concomitant]
     Active Substance: DOCUSATE
  11. SUBLINGUAL [Concomitant]
  12. LIDOCAINE. [Concomitant]
     Active Substance: LIDOCAINE
  13. FUROSEMIDE. [Concomitant]
     Active Substance: FUROSEMIDE
  14. SOLGAR VM [Concomitant]
  15. GUAIFENESIN. [Concomitant]
     Active Substance: GUAIFENESIN
  16. NASALCHROM [Concomitant]
  17. LEXISCAN [Suspect]
     Active Substance: REGADENOSON
     Indication: CARDIAC STRESS TEST
     Route: 042
     Dates: start: 20190110, end: 20190110
  18. VENLAFAXINE [Concomitant]
     Active Substance: VENLAFAXINE HYDROCHLORIDE
  19. ZOLPIDEM NASAL SOLUTION [Concomitant]
  20. DIAZEPAM. [Concomitant]
     Active Substance: DIAZEPAM
  21. VITAMIN C [Concomitant]
     Active Substance: ASCORBIC ACID
  22. ALEVE [Concomitant]
     Active Substance: NAPROXEN SODIUM
  23. LIOTHYRONINE [Concomitant]
     Active Substance: LIOTHYRONINE
  24. CARISOPRODOL. [Concomitant]
     Active Substance: CARISOPRODOL
  25. IPRATROPIUM BROMIDE. [Concomitant]
     Active Substance: IPRATROPIUM BROMIDE
  26. MINERAL SUPPLEMENT WO/IRON [Concomitant]
  27. GLUTEN EZE [Concomitant]
  28. RAW PROBIOTICS COLON CARE [Concomitant]
  29. VITAMIN D [Concomitant]
     Active Substance: CHOLECALCIFEROL
  30. ONE A DAY DIGESTIVE ENZYMES [Concomitant]

REACTIONS (6)
  - Nervous system disorder [None]
  - Neuropathy peripheral [None]
  - Musculoskeletal disorder [None]
  - Headache [None]
  - Pain [None]
  - Cognitive disorder [None]

NARRATIVE: CASE EVENT DATE: 20190110
